FAERS Safety Report 25870297 (Version 1)
Quarter: 2025Q4

REPORT INFORMATION
  Report Type: Spontaneous
  Country: US (occurrence: US)
  Receive Date: 20251001
  Receipt Date: 20251001
  Transmission Date: 20260118
  Serious: No
  Sender: RECKITT BENCKISER
  Company Number: US-INDIVIOR US-INDV-157500-2024

PATIENT
  Sex: Male

DRUGS (5)
  1. SUBOXONE [Suspect]
     Active Substance: BUPRENORPHINE HYDROCHLORIDE\NALOXONE HYDROCHLORIDE
     Indication: Drug use disorder
     Dosage: 8 MILLIGRAM, UNKNOWN
     Route: 065
     Dates: start: 202310
  2. SUBOXONE [Suspect]
     Active Substance: BUPRENORPHINE HYDROCHLORIDE\NALOXONE HYDROCHLORIDE
     Indication: Drug use disorder
     Dosage: 2 MILLIGRAM, UNKNOWN
     Route: 065
     Dates: start: 201512
  3. SUBUTEX [Suspect]
     Active Substance: BUPRENORPHINE HYDROCHLORIDE
     Indication: Drug use disorder
     Dosage: 2 MILLIGRAM, QAM
     Route: 060
     Dates: start: 2018
  4. SUBUTEX [Suspect]
     Active Substance: BUPRENORPHINE HYDROCHLORIDE
     Dosage: 2 MILLIGRAM, BID
     Route: 060
     Dates: start: 2018
  5. ALCOHOL (ALCOHOL) [Suspect]
     Active Substance: ALCOHOL
     Indication: Product used for unknown indication
     Dosage: UNK
     Route: 065

REACTIONS (19)
  - Gonococcal infection [Unknown]
  - Dental caries [Unknown]
  - Tooth erosion [Unknown]
  - Tooth fracture [Unknown]
  - Weight decreased [Unknown]
  - Intentional underdose [Unknown]
  - Headache [Unknown]
  - Lower respiratory tract infection [Unknown]
  - Ear pain [Unknown]
  - Inappropriate schedule of product administration [Unknown]
  - Drug withdrawal syndrome [Unknown]
  - Anxiety [Unknown]
  - Depression [Unknown]
  - Arthralgia [Unknown]
  - Drug abuse [Unknown]
  - Fatigue [Unknown]
  - Somnolence [Unknown]
  - Insomnia [Unknown]
  - Decreased appetite [Unknown]
